FAERS Safety Report 23410128 (Version 1)
Quarter: 2024Q1

REPORT INFORMATION
  Report Type: Spontaneous
  Country: US (occurrence: None)
  Receive Date: 20240116
  Receipt Date: 20240116
  Transmission Date: 20240409
  Serious: Yes (Other)
  Sender: FDA-Public Use
  Company Number: None

PATIENT
  Age: 61 Year
  Sex: Female

DRUGS (1)
  1. DOVATO [Suspect]
     Active Substance: DOLUTEGRAVIR SODIUM\LAMIVUDINE
     Dosage: FREQUENCY : DAILY;?
     Route: 048
     Dates: start: 20230726, end: 20231020

REACTIONS (6)
  - Burning mouth syndrome [None]
  - Muscle spasms [None]
  - Glomerular filtration rate decreased [None]
  - Urinary incontinence [None]
  - Gait disturbance [None]
  - Therapy change [None]

NARRATIVE: CASE EVENT DATE: 20230928
